FAERS Safety Report 10695684 (Version 2)
Quarter: 2015Q1

REPORT INFORMATION
  Report Type: Report from Study
  Country: US (occurrence: US)
  Receive Date: 20150107
  Receipt Date: 20150303
  Transmission Date: 20150721
  Serious: No
  Sender: FDA-Public Use
  Company Number: US-PFIZER INC-2015000074

PATIENT
  Age: 54 Year
  Sex: Female

DRUGS (1)
  1. BOSULIF [Suspect]
     Active Substance: BOSUTINIB MONOHYDRATE
     Indication: CHRONIC MYELOID LEUKAEMIA
     Dosage: 500 MG, DAILY, (500MG TAB (TAKE 1 TAB BY MOUTH EVERY DAY)
     Route: 048
     Dates: start: 201404

REACTIONS (1)
  - Alopecia [Unknown]
